FAERS Safety Report 14935994 (Version 2)
Quarter: 2018Q2

REPORT INFORMATION
  Report Type: Spontaneous
  Country: JP (occurrence: JP)
  Receive Date: 20180524
  Receipt Date: 20180614
  Transmission Date: 20180711
  Serious: Yes (Other)
  Sender: FDA-Public Use
  Company Number: JP-SPECTRUM PHARMACEUTICALS, INC.-18-F-JP-00169

PATIENT
  Age: 47 Year
  Sex: Male

DRUGS (6)
  1. FOLOTYN [Suspect]
     Active Substance: PRALATREXATE
     Indication: PERIPHERAL T-CELL LYMPHOMA UNSPECIFIED
     Dosage: 30 MG/M2, UNK
     Route: 042
     Dates: start: 201710, end: 201711
  2. VITAMIN B12 [Concomitant]
     Active Substance: CYANOCOBALAMIN
     Indication: PROPHYLAXIS
     Dosage: 1 MG, UNK
     Route: 030
     Dates: start: 201710
  3. FOLOTYN [Suspect]
     Active Substance: PRALATREXATE
     Dosage: 50% DOSE UNK
     Route: 042
     Dates: start: 20180116
  4. PREDNISOLONE. [Concomitant]
     Active Substance: PREDNISOLONE
     Indication: PRODUCT USED FOR UNKNOWN INDICATION
  5. FOLOTYN [Suspect]
     Active Substance: PRALATREXATE
     Dosage: 30-50% DOSE UNK
     Route: 042
  6. FOLIC ACID. [Concomitant]
     Active Substance: FOLIC ACID
     Indication: PROPHYLAXIS
     Dosage: 5 MG, UNK
     Route: 048
     Dates: start: 201710

REACTIONS (3)
  - Stomatitis [Recovered/Resolved]
  - Stomatitis [Recovered/Resolved]
  - Disease progression [Recovered/Resolved]

NARRATIVE: CASE EVENT DATE: 201711
